FAERS Safety Report 18066575 (Version 2)
Quarter: 2020Q3

REPORT INFORMATION
  Report Type: Report from Study
  Country: None (occurrence: US)
  Receive Date: 20200724
  Receipt Date: 20200807
  Transmission Date: 20201103
  Serious: Yes (Other)
  Sender: FDA-Public Use
  Company Number: US-ABBVIE-20K-163-3492435-00

PATIENT
  Age: 57 Year
  Sex: Female
  Weight: 49.94 kg

DRUGS (4)
  1. XIIDRA [Concomitant]
     Active Substance: LIFITEGRAST
     Indication: DRY EYE
  2. HUMIRA [Suspect]
     Active Substance: ADALIMUMAB
     Route: 058
     Dates: start: 202001
  3. METHOTREXATE. [Concomitant]
     Active Substance: METHOTREXATE
     Indication: RHEUMATOID ARTHRITIS
  4. HUMIRA [Suspect]
     Active Substance: ADALIMUMAB
     Indication: RHEUMATOID ARTHRITIS
     Route: 058
     Dates: end: 202001

REACTIONS (7)
  - Scoliosis [Recovering/Resolving]
  - COVID-19 [Unknown]
  - Therapeutic response shortened [Not Recovered/Not Resolved]
  - Device issue [Recovered/Resolved]
  - Hypermobility syndrome [Recovering/Resolving]
  - Rheumatoid arthritis [Recovering/Resolving]
  - Injection site haemorrhage [Not Recovered/Not Resolved]

NARRATIVE: CASE EVENT DATE: 2019
